FAERS Safety Report 20029623 (Version 1)
Quarter: 2021Q4

REPORT INFORMATION
  Report Type: Spontaneous
  Country: US (occurrence: US)
  Receive Date: 20211103
  Receipt Date: 20211103
  Transmission Date: 20220303
  Serious: No
  Sender: FDA-Public Use
  Company Number: US-UPSHER-SMITH LABORATORIES, LLC-2021USL00592

PATIENT
  Age: 76 Year
  Sex: Male
  Weight: 67.12 kg

DRUGS (8)
  1. JANTOVEN [Suspect]
     Active Substance: WARFARIN SODIUM
     Indication: Atrial fibrillation
     Dosage: 7.5 MG (4 WHOLE TABLETS) PER WEEK DEPENDING ON HIS INR
     Dates: start: 20210718, end: 20210809
  2. WARFARIN SODIUM [Suspect]
     Active Substance: WARFARIN SODIUM
     Indication: Atrial fibrillation
  3. WARFARIN SODIUM [Suspect]
     Active Substance: WARFARIN SODIUM
     Indication: Atrial fibrillation
     Dosage: 0.5 TABLETS, 3X/WEEK DEPENDING ON HIS INR
  4. ALLOPURINOL [Concomitant]
     Active Substance: ALLOPURINOL
  5. SOTALOL [Concomitant]
     Active Substance: SOTALOL
  6. NORTHERA [Concomitant]
     Active Substance: DROXIDOPA
  7. MAGNESIUM [Concomitant]
     Active Substance: MAGNESIUM
  8. VITAMIN B12 [Concomitant]
     Active Substance: CYANOCOBALAMIN

REACTIONS (3)
  - Headache [Recovered/Resolved]
  - International normalised ratio decreased [Recovered/Resolved]
  - Unevaluable event [Recovered/Resolved]

NARRATIVE: CASE EVENT DATE: 20210201
